FAERS Safety Report 20619990 (Version 1)
Quarter: 2022Q1

REPORT INFORMATION
  Report Type: Spontaneous
  Country: ES (occurrence: ES)
  Receive Date: 20220322
  Receipt Date: 20220322
  Transmission Date: 20220423
  Serious: Yes (Other)
  Sender: FDA-Public Use
  Company Number: None

PATIENT
  Age: 46 Year
  Sex: Female
  Weight: 95 kg

DRUGS (2)
  1. TALTZ [Suspect]
     Active Substance: IXEKIZUMAB
     Indication: Psoriatic arthropathy
     Dosage: 160 MG, SINGLE
     Route: 058
     Dates: start: 20220112, end: 20220112
  2. TALTZ [Suspect]
     Active Substance: IXEKIZUMAB
     Dosage: 80 MG, MONTHLY (1/M)
     Route: 058
     Dates: start: 20220210, end: 20220302

REACTIONS (2)
  - Aphthous ulcer [Unknown]
  - Pyrexia [Unknown]

NARRATIVE: CASE EVENT DATE: 20220221
